FAERS Safety Report 8609444-5 (Version None)
Quarter: 2012Q3

REPORT INFORMATION
  Report Type: 
  Country: None (occurrence: None)
  Receive Date: 20120821
  Receipt Date: 20120816
  Transmission Date: 20120928
  Serious: Yes (Death, Hospitalization)
  Sender: FDA-Public Use
  Company Number: US-BAXTER-2012BAX011737

PATIENT
  Sex: Male

DRUGS (2)
  1. DIANEAL LOW CALCIUM W/ DEXTROSE 1.5% [Suspect]
     Indication: PERITONEAL DIALYSIS
     Route: 033
     Dates: end: 20120807
  2. DIANEAL [Suspect]
     Indication: PERITONEAL DIALYSIS
     Route: 033
     Dates: end: 20120807

REACTIONS (4)
  - FLUID OVERLOAD [None]
  - ASTHENIA [None]
  - ARRHYTHMIA [None]
  - CARDIAC FAILURE CONGESTIVE [None]
